FAERS Safety Report 7177499-3 (Version None)
Quarter: 2010Q4

REPORT INFORMATION
  Report Type: 
  Country: None (occurrence: None)
  Receive Date: 20101220
  Receipt Date: 20101208
  Transmission Date: 20110411
  Serious: Yes (Other)
  Sender: FDA-Public Use
  Company Number: FR-AMGEN-FRASP2010009085

PATIENT

DRUGS (1)
  1. ENBREL [Suspect]
     Dosage: UNK
     Dates: start: 20070101

REACTIONS (1)
  - BLADDER CANCER [None]
